FAERS Safety Report 8582238-5 (Version None)
Quarter: 2012Q3

REPORT INFORMATION
  Report Type: 
  Country: None (occurrence: None)
  Receive Date: 20120809
  Receipt Date: 20120806
  Transmission Date: 20120928
  Serious: Yes (Hospitalization)
  Sender: FDA-Public Use
  Company Number: US-AMGEN-USACT2012045879

PATIENT
  Age: 41 Year
  Sex: Female
  Weight: 168.53 kg

DRUGS (6)
  1. IMODIUM [Concomitant]
     Indication: DIARRHOEA
     Dosage: UNK
     Dates: start: 20120720, end: 20120721
  2. GEMCITABINE HYDROCHLORIDE [Concomitant]
     Dosage: UNK
     Route: 042
     Dates: start: 20120720
  3. PANITUMUMAB [Suspect]
     Indication: BREAST CANCER
     Dosage: UNK
     Route: 042
     Dates: start: 20120720
  4. MULTI-VITAMIN [Concomitant]
     Dosage: UNK UNK, QD
  5. CARBOPLATIN [Concomitant]
     Dosage: UNK
     Route: 042
     Dates: start: 20120720
  6. IBUPROFEN [Concomitant]
     Indication: PAIN
     Dosage: 400 MG, BID

REACTIONS (1)
  - DIARRHOEA [None]
